FAERS Safety Report 13895377 (Version 1)
Quarter: 2017Q3

REPORT INFORMATION
  Report Type: Spontaneous
  Country: US (occurrence: None)
  Receive Date: 20170817
  Receipt Date: 20170817
  Transmission Date: 20171127
  Serious: Yes (Death, Disabling)
  Sender: FDA-Public Use
  Company Number: None

PATIENT
  Age: 69 Year
  Sex: Male

DRUGS (4)
  1. CLOPIDOGREL [Suspect]
     Active Substance: CLOPIDOGREL BISULFATE
     Indication: SURGERY
     Route: 048
     Dates: start: 20170803, end: 20170804
  2. ENOXAPARIN [Suspect]
     Active Substance: ENOXAPARIN
     Indication: CARDIOVASCULAR DISORDER
     Route: 058
     Dates: start: 20170803, end: 20170803
  3. CLOPIDOGREL [Suspect]
     Active Substance: CLOPIDOGREL BISULFATE
     Indication: CARDIOVASCULAR DISORDER
     Route: 048
     Dates: start: 20170803, end: 20170804
  4. ENOXAPARIN [Suspect]
     Active Substance: ENOXAPARIN
     Indication: SURGERY
     Route: 058
     Dates: start: 20170803, end: 20170803

REACTIONS (9)
  - Delayed recovery from anaesthesia [None]
  - Bradycardia [None]
  - Paraesthesia [None]
  - Pupil fixed [None]
  - Hypertension [None]
  - Fatigue [None]
  - Subarachnoid haemorrhage [None]
  - Brain midline shift [None]
  - Areflexia [None]

NARRATIVE: CASE EVENT DATE: 20170804
